FAERS Safety Report 4679596-0 (Version None)
Quarter: 2005Q2

REPORT INFORMATION
  Report Type: 
  Country: None (occurrence: None)
  Receive Date: 20050602
  Receipt Date: 20050518
  Transmission Date: 20051028
  Serious: No
  Sender: FDA-Public Use
  Company Number: CA-BOEHRINGER INGELHEIM PHARMACEUTICALS, INC.-2005-CN-00685CN

PATIENT
  Age: 54 Year
  Sex: Male

DRUGS (2)
  1. MICARDIS [Suspect]
     Route: 048
  2. METOPROLOL [Concomitant]

REACTIONS (3)
  - DIFFICULTY IN WALKING [None]
  - PAIN IN EXTREMITY [None]
  - TENDON DISORDER [None]
